FAERS Safety Report 6129838-X (Version None)
Quarter: 2009Q1

REPORT INFORMATION
  Report Type: 
  Country: None (occurrence: None)
  Receive Date: 20090324
  Receipt Date: 20090324
  Transmission Date: 20090719
  Serious: Yes (Hospitalization)
  Sender: FDA-Public Use
  Company Number: PHHO2003SE00850

PATIENT
  Sex: Female
  Weight: 70 kg

DRUGS (4)
  1. CGS 20267 T30748+ [Suspect]
     Indication: BREAST CANCER
     Dosage: 2.5 MG, QD
     Route: 048
     Dates: start: 20020828
  2. PLENDIL [Concomitant]
     Indication: HYPERTENSION
  3. WARFARIN SODIUM [Concomitant]
     Indication: CEREBRAL ARTERY EMBOLISM
  4. LEVAQUIN [Concomitant]
     Indication: HYPOTHYROIDISM

REACTIONS (2)
  - OSTEOPOROSIS [None]
  - SPINAL FRACTURE [None]
